FAERS Safety Report 6361448-1 (Version None)
Quarter: 2009Q3

REPORT INFORMATION
  Report Type: 
  Country: None (occurrence: None)
  Receive Date: 20090916
  Receipt Date: 20090916
  Transmission Date: 20100115
  Serious: No
  Sender: FDA-Public Use
  Company Number: None

PATIENT
  Sex: Male

DRUGS (2)
  1. DIVALPROEX SODIUM [Suspect]
     Dosage: 250MG 1QHS ORAL
     Route: 048
  2. DIVALPROEX SODIUM [Suspect]
     Dosage: 500MG 1QHS ORAL
     Route: 048

REACTIONS (2)
  - DRUG LEVEL BELOW THERAPEUTIC [None]
  - MOOD SWINGS [None]
